FAERS Safety Report 18281239 (Version 3)
Quarter: 2021Q3

REPORT INFORMATION
  Report Type: Spontaneous
  Country: US (occurrence: US)
  Receive Date: 20200918
  Receipt Date: 20210811
  Transmission Date: 20211014
  Serious: Yes (Death, Hospitalization, Other)
  Sender: FDA-Public Use
  Company Number: US-SA-2020SA253650

PATIENT
  Age: 64 Year
  Sex: Male

DRUGS (4)
  1. ASPIRINE [Concomitant]
     Active Substance: ASPIRIN
     Dosage: 81 MG, QD
  2. ZYRTEC [Concomitant]
     Active Substance: CETIRIZINE HYDROCHLORIDE
     Dosage: 10 MG
  3. OMEPRAZOLE. [Concomitant]
     Active Substance: OMEPRAZOLE
     Dosage: UNK, QD
  4. ZANTAC [Suspect]
     Active Substance: RANITIDINE HYDROCHLORIDE

REACTIONS (12)
  - Pain [Unknown]
  - Ureterolithiasis [Unknown]
  - Cardio-respiratory arrest [Fatal]
  - Injury [Unknown]
  - Anxiety [Unknown]
  - Oedema [Fatal]
  - Abdominal pain [Unknown]
  - Pancreatic carcinoma [Fatal]
  - Carcinogenicity [Fatal]
  - Metastases to lung [Fatal]
  - Metastases to liver [Fatal]
  - Emotional distress [Unknown]

NARRATIVE: CASE EVENT DATE: 201703
